FAERS Safety Report 7659039-5 (Version None)
Quarter: 2011Q3

REPORT INFORMATION
  Report Type: 
  Country: None (occurrence: None)
  Receive Date: 20110805
  Receipt Date: 20110803
  Transmission Date: 20111222
  Serious: Yes (Other)
  Sender: FDA-Public Use
  Company Number: CHPA2011US10281

PATIENT
  Age: 63 Year
  Sex: Male
  Weight: 108.84 kg

DRUGS (1)
  1. VOLTAREN [Suspect]
     Indication: BACK PAIN
     Dosage: 4 G, TID
     Route: 061
     Dates: end: 20110101

REACTIONS (5)
  - MUSCLE STRAIN [None]
  - THERAPEUTIC RESPONSE UNEXPECTED [None]
  - DRUG ADMINISTERED AT INAPPROPRIATE SITE [None]
  - OFF LABEL USE [None]
  - MEDICAL DEVICE IMPLANTATION [None]
